FAERS Safety Report 5935490-6 (Version None)
Quarter: 2008Q4

REPORT INFORMATION
  Report Type: 
  Country: None (occurrence: None)
  Receive Date: 20081030
  Receipt Date: 20081002
  Transmission Date: 20090506
  Serious: No
  Sender: FDA-Public Use
  Company Number: US-BAYER-200810711BCC

PATIENT
  Age: 84 Year
  Sex: Female
  Weight: 64 kg

DRUGS (7)
  1. ALEVE (CAPLET) [Suspect]
     Indication: BACK PAIN
     Dosage: AS USED: 220 MG  UNIT DOSE: 220 MG
     Route: 048
  2. COUMADIN [Concomitant]
  3. VITAMIN D [Concomitant]
  4. CALCIUM [Concomitant]
  5. OXYCODONE HCL [Concomitant]
  6. ATENOLOL [Concomitant]
  7. ZOCOR [Concomitant]

REACTIONS (1)
  - BLOOD TEST ABNORMAL [None]
